FAERS Safety Report 6401401-2 (Version None)
Quarter: 2009Q4

REPORT INFORMATION
  Report Type: 
  Country: None (occurrence: None)
  Receive Date: 20091015
  Receipt Date: 20070905
  Transmission Date: 20100525
  Serious: Yes (Disabling)
  Sender: FDA-Public Use
  Company Number: US-ASTRAZENECA-2006UW08230

PATIENT
  Sex: Female
  Weight: 100.2 kg

DRUGS (7)
  1. SEROQUEL [Suspect]
     Indication: NERVOUSNESS
     Dosage: 25 TO 100 MG
     Route: 048
     Dates: start: 20050301, end: 20050627
  2. TYLENOL (CAPLET) [Concomitant]
     Indication: PAIN
     Route: 048
     Dates: start: 19950107
  3. SYNTHROID [Concomitant]
     Indication: THYROID DISORDER
     Route: 048
     Dates: start: 20010308
  4. RISPERDAL [Concomitant]
     Indication: SCHIZOPHRENIA
     Route: 048
     Dates: start: 20050214
  5. TRAZODONE [Concomitant]
     Indication: DEPRESSION
     Route: 048
     Dates: start: 20050516
  6. ADVAIR DISKUS 100/50 [Concomitant]
     Indication: ASTHMA
     Dosage: 100 TO 50 MCG/DOSE MISC 1 INHALATION TWO TIMES A DAY
     Dates: start: 20030703
  7. TRIAMTERENE AND HYDROCHLOROTHIAZIDE [Concomitant]
     Indication: BLOOD PRESSURE
     Dosage: 75/50 TABLET DAILY
     Route: 048
     Dates: start: 19981231

REACTIONS (1)
  - ILL-DEFINED DISORDER [None]
